FAERS Safety Report 7812364-7 (Version None)
Quarter: 2011Q4

REPORT INFORMATION
  Report Type: 
  Country: None (occurrence: None)
  Receive Date: 20111013
  Receipt Date: 20110930
  Transmission Date: 20120403
  Serious: Yes (Hospitalization)
  Sender: FDA-Public Use
  Company Number: JP-GLAXOSMITHKLINE-B0752476A

PATIENT
  Sex: Male

DRUGS (6)
  1. LITHIUM CARBONATE [Concomitant]
     Dosage: 600MG PER DAY
     Route: 048
     Dates: start: 19970618
  2. LAMICTAL [Suspect]
     Indication: BIPOLAR DISORDER
     Dosage: 25MG ALTERNATE DAYS
     Route: 048
     Dates: start: 20110829, end: 20110926
  3. HIRNAMIN [Concomitant]
     Indication: MANIA
     Dosage: 15MG PER DAY
     Dates: start: 20091026
  4. PHENOBARBITAL TAB [Concomitant]
     Indication: SLEEP DISORDER
     Route: 048
     Dates: start: 20090806
  5. DEPAKENE [Concomitant]
     Dosage: 600MG PER DAY
     Route: 048
     Dates: start: 20091130
  6. SEROQUEL [Concomitant]
     Indication: MANIA
     Dosage: 100MG PER DAY
     Route: 048

REACTIONS (3)
  - STEVENS-JOHNSON SYNDROME [None]
  - URTICARIA [None]
  - SCLERODERMA [None]
